FAERS Safety Report 9903672 (Version 1)
Quarter: 2014Q1

REPORT INFORMATION
  Report Type: Spontaneous
  Country: DE (occurrence: DE)
  Receive Date: 20140217
  Receipt Date: 20140217
  Transmission Date: 20141002
  Serious: Yes (Congenital Anomaly)
  Sender: FDA-Public Use
  Company Number: GXKR2014DE000893

PATIENT
  Age: 1 Day
  Sex: Female
  Weight: 2.49 kg

DRUGS (4)
  1. VENLAFAXINE [Suspect]
     Indication: DEPRESSION
     Dosage: 150 MG/D
     Route: 064
     Dates: start: 20120505, end: 20130124
  2. LAMOTRIGINE [Suspect]
     Indication: BIPOLAR DISORDER RELAPSE PROPHYLAXIS
     Dosage: 100 MG/D
     Route: 064
     Dates: start: 20120505, end: 20130124
  3. VOMEX A [Concomitant]
     Indication: VOMITING IN PREGNANCY
     Dosage: UNK UKN, UNK
     Route: 064
  4. FOLSAEURE [Concomitant]
     Indication: PROPHYLAXIS OF NEURAL TUBE DEFECT
     Dosage: UNK UKN, UNK
     Route: 064
     Dates: end: 20120917

REACTIONS (2)
  - Ventricular septal defect [Not Recovered/Not Resolved]
  - Atrial septal defect [Recovering/Resolving]
